FAERS Safety Report 9097109 (Version 2)
Quarter: 2013Q1

REPORT INFORMATION
  Report Type: Spontaneous
  Country: US (occurrence: None)
  Receive Date: 20130125
  Receipt Date: 20130207
  Transmission Date: 20140127
  Serious: Yes (Other)
  Sender: FDA-Public Use
  Company Number: SIM_00415_2012

PATIENT
  Age: 46 Year
  Sex: Male
  Weight: 81.65 kg

DRUGS (2)
  1. UNSPECIFIED INGREDIENT [Suspect]
     Indication: PRODUCT USED FOR UNKNOWN INDICATION
     Dosage: (NI / USED TWICE / OPHTHALMIC)
     Route: 047
     Dates: start: 20121001, end: 20121001
  2. UNSPECIFIED INGREDIENT [Suspect]
     Indication: EAR PAIN
     Dosage: (NOT USED AURICULAR (OTIC))

REACTIONS (5)
  - Pain [None]
  - Wrong drug administered [None]
  - Ear pain [None]
  - Impaired work ability [None]
  - Ear infection [None]
